FAERS Safety Report 6286659-5 (Version None)
Quarter: 2009Q3

REPORT INFORMATION
  Report Type: 
  Country: None (occurrence: None)
  Receive Date: 20090728
  Receipt Date: 20090724
  Transmission Date: 20100115
  Serious: Yes (Hospitalization)
  Sender: FDA-Public Use
  Company Number: AT-BRISTOL-MYERS SQUIBB COMPANY-14715247

PATIENT
  Age: 37 Year
  Sex: Female

DRUGS (6)
  1. TRITTICO AC TABS 75 MG [Suspect]
     Route: 048
     Dates: start: 20080601, end: 20090409
  2. EFFECTIN [Suspect]
     Dosage: EFFECTIN ER
     Dates: start: 20080601, end: 20090406
  3. ATARAX [Suspect]
     Dates: start: 20090330, end: 20090402
  4. PANTOPRAZOLE SODIUM [Concomitant]
     Dates: start: 20081201
  5. LAEVOLAC [Concomitant]
     Dates: start: 20081201
  6. MEXALEN [Concomitant]
     Dates: start: 20090329

REACTIONS (4)
  - ADJUSTMENT DISORDER [None]
  - HYPERCHOLESTEROLAEMIA [None]
  - INTERVERTEBRAL DISC PROTRUSION [None]
  - VISION BLURRED [None]
